FAERS Safety Report 5135971-1 (Version None)
Quarter: 2006Q4

REPORT INFORMATION
  Report Type: 
  Country: None (occurrence: None)
  Receive Date: 20061020
  Receipt Date: 20061006
  Transmission Date: 20070319
  Serious: Yes (Hospitalization)
  Sender: FDA-Public Use
  Company Number: S06-SWE-04335-01

PATIENT
  Age: 35 Year
  Sex: Male

DRUGS (7)
  1. CIPRALEX (ESCITALOPRAM) [Suspect]
     Indication: DEPRESSION
     Dosage: 20 MG QD PO
     Route: 048
  2. MIRTAZAPIN (MIRTAZAPINE) [Suspect]
     Indication: DEPRESSION
     Dosage: 30 MG QD PO
     Route: 048
  3. BETNODERM (BETAMETHASONE) [Concomitant]
  4. ATARAX [Concomitant]
  5. EMOVAT (CLOBETASONE BUTYRATE) [Concomitant]
  6. IMOVANE (ZOPICLONE) [Concomitant]
  7. CANODERM (UREA) [Concomitant]

REACTIONS (3)
  - ALCOHOL USE [None]
  - ANTIDEPRESSANT DRUG LEVEL DECREASED [None]
  - CONVULSION [None]
